FAERS Safety Report 11883374 (Version 4)
Quarter: 2018Q1

REPORT INFORMATION
  Report Type: Spontaneous
  Country: US (occurrence: US)
  Receive Date: 20151231
  Receipt Date: 20180226
  Transmission Date: 20180508
  Serious: No
  Sender: FDA-Public Use
  Company Number: US-PFIZER INC-2015436929

PATIENT
  Sex: Female

DRUGS (6)
  1. SEPTRA [Suspect]
     Active Substance: SULFAMETHOXAZOLE\TRIMETHOPRIM
     Dosage: UNK
  2. NIACIN. [Suspect]
     Active Substance: NIACIN
     Dosage: UNK
  3. AZITHROMYCIN ANHYDROUS. [Suspect]
     Active Substance: AZITHROMYCIN ANHYDROUS
     Dosage: UNK
  4. PHENERGAN WITH CODEINE /00072201/ [Suspect]
     Active Substance: 4-HYDROXY-3-METHOXYBENZENESULFONIC\CHLOROFORM\CITRIC ACID MONOHYDRATE\CODEINE PHOSPHATE\IPECAC\PROMETHAZINE HYDROCHLORIDE\SODIUM CITRATE
     Dosage: UNK
  5. MORPHINE SULFATE. [Suspect]
     Active Substance: MORPHINE SULFATE
     Dosage: UNK
  6. CODEINE [Suspect]
     Active Substance: CODEINE
     Dosage: UNK

REACTIONS (1)
  - Drug hypersensitivity [Unknown]
